FAERS Safety Report 10013718 (Version 2)
Quarter: 2014Q2

REPORT INFORMATION
  Report Type: Spontaneous
  Country: US (occurrence: US)
  Receive Date: 20140316
  Receipt Date: 20140602
  Transmission Date: 20141212
  Serious: Yes (Hospitalization)
  Sender: FDA-Public Use
  Company Number: US-BAYER-2014-035344

PATIENT
  Age: 24 Year
  Sex: Female
  Weight: 72.56 kg

DRUGS (5)
  1. MIRENA [Suspect]
     Indication: CONTRACEPTION
     Dosage: 20 MCG/24HR, CONT
     Route: 015
     Dates: start: 20060621, end: 20100325
  2. NUVARING [Concomitant]
  3. FLAGYL [Concomitant]
  4. CIPRO [Concomitant]
     Dosage: 500 MG, BID
     Dates: start: 20091002
  5. DIFLUCAN [Concomitant]
     Dosage: 150 MG, UNK
     Dates: start: 20091002

REACTIONS (9)
  - Uterine perforation [None]
  - Device issue [None]
  - Abdominal pain lower [None]
  - Pelvic pain [None]
  - Depression [None]
  - Anxiety [None]
  - Injury [None]
  - Emotional distress [None]
  - Menorrhagia [None]
